FAERS Safety Report 8113467-2 (Version None)
Quarter: 2012Q1

REPORT INFORMATION
  Report Type: 
  Country: None (occurrence: None)
  Receive Date: 20120203
  Receipt Date: 20120127
  Transmission Date: 20120608
  Serious: Yes (Hospitalization, Other)
  Sender: FDA-Public Use
  Company Number: DE-ABBOTT-12P-062-0898421-00

PATIENT
  Age: 55 Year
  Sex: Female
  Weight: 43 kg

DRUGS (3)
  1. HUMIRA [Suspect]
     Route: 058
  2. HUMIRA [Suspect]
     Route: 058
  3. HUMIRA [Suspect]
     Indication: CROHN'S DISEASE
     Route: 058
     Dates: start: 20081028

REACTIONS (2)
  - ILEUS [None]
  - INTESTINAL STENOSIS [None]
